FAERS Safety Report 16617140 (Version 2)
Quarter: 2019Q3

REPORT INFORMATION
  Report Type: Spontaneous
  Country: IT (occurrence: IT)
  Receive Date: 20190723
  Receipt Date: 20190806
  Transmission Date: 20191004
  Serious: Yes (Other)
  Sender: FDA-Public Use
  Company Number: IT-MYLANLABS-2019M1067708

PATIENT

DRUGS (5)
  1. LAMIVUDINE. [Suspect]
     Active Substance: LAMIVUDINE
     Indication: HIV INFECTION
     Dosage: UNK
     Route: 065
  2. RITONAVIR. [Suspect]
     Active Substance: RITONAVIR
     Indication: HIV INFECTION
     Dosage: DOSAGE FORM: UNSPECIFIED
     Route: 065
  3. DARUNAVIR [Suspect]
     Active Substance: DARUNAVIR
     Indication: HIV INFECTION
     Route: 048
  4. DARUNAVIR W/RITONAVIR [Suspect]
     Active Substance: DARUNAVIR\RITONAVIR
     Dosage: UNK
     Route: 048
  5. DARUNAVIR W/RITONAVIR [Suspect]
     Active Substance: DARUNAVIR\RITONAVIR
     Indication: HIV INFECTION
     Dosage: DOSAGE FORM: UNSPECIFIED
     Route: 065

REACTIONS (1)
  - Neurotoxicity [Unknown]
